FAERS Safety Report 23046343 (Version 3)
Quarter: 2023Q4

REPORT INFORMATION
  Report Type: Spontaneous
  Country: US (occurrence: US)
  Receive Date: 20231009
  Receipt Date: 20231213
  Transmission Date: 20240110
  Serious: No
  Sender: FDA-Public Use
  Company Number: US-TAIHOP-2023-007935

PATIENT
  Age: 79 Year
  Sex: Female

DRUGS (1)
  1. LONSURF [Suspect]
     Active Substance: TIPIRACIL HYDROCHLORIDE\TRIFLURIDINE
     Indication: Colon cancer metastatic
     Dosage: DOSE, FREQUENCY, FORM STRENGTH AND CYCLE UNKNOWN
     Route: 048

REACTIONS (1)
  - Disease progression [Unknown]
